FAERS Safety Report 20331828 (Version 1)
Quarter: 2022Q1

REPORT INFORMATION
  Report Type: Spontaneous
  Country: DK (occurrence: DK)
  Receive Date: 20220113
  Receipt Date: 20220113
  Transmission Date: 20220423
  Serious: Yes (Life-Threatening, Hospitalization)
  Sender: FDA-Public Use
  Company Number: DK-LUPIN PHARMACEUTICALS INC.-2022-00152

PATIENT
  Age: 21 Year
  Sex: Male

DRUGS (24)
  1. CLONIDINE [Suspect]
     Active Substance: CLONIDINE
     Indication: Delirium
     Dosage: 225 MICROGRAM EVERY 6 HOURS
     Route: 042
  2. PREGABALIN [Suspect]
     Active Substance: PREGABALIN
     Indication: Delirium
     Dosage: 150 MILLIGRAM
     Route: 042
  3. OLANZAPINE [Suspect]
     Active Substance: OLANZAPINE
     Indication: Delirium
     Dosage: 20 MILLIGRAM, QD (VIA NASOGASTRIC TUBE)
     Route: 065
  4. LORAZEPAM [Suspect]
     Active Substance: LORAZEPAM
     Indication: Delirium
     Dosage: 1 DOSAGE FORM, BID (RECEIVED LORAZEPAM 4MG TABLET TWICE)
     Route: 065
  5. DIAZEPAM [Suspect]
     Active Substance: DIAZEPAM
     Indication: Delirium
     Dosage: 40 MILLIGRAM
     Route: 048
  6. DIAZEPAM [Suspect]
     Active Substance: DIAZEPAM
     Dosage: 260 MILLIGRAM
     Route: 042
  7. DIAZEPAM [Suspect]
     Active Substance: DIAZEPAM
     Dosage: 20 MILLIGRAM; EVERY 5 HOURS
     Route: 042
  8. DIAZEPAM [Suspect]
     Active Substance: DIAZEPAM
     Dosage: 40 MILLIGRAM; EVERY 5 HOURS
     Route: 042
  9. DIAZEPAM [Suspect]
     Active Substance: DIAZEPAM
     Dosage: 60 MILLIGRAM, EVERY 5 HOURS (DOSE INCREASED)
     Route: 042
  10. PROPOFOL [Suspect]
     Active Substance: PROPOFOL
     Indication: Sedation
     Dosage: 16 MILLIGRAM/KILOGRAM
     Route: 042
  11. PROPOFOL [Suspect]
     Active Substance: PROPOFOL
     Indication: Delirium
  12. SUFENTANIL [Suspect]
     Active Substance: SUFENTANIL
     Indication: Sedation
     Dosage: UNK, (UP TO 100 MCG/HOUR)
     Route: 065
  13. MIDAZOLAM [Suspect]
     Active Substance: MIDAZOLAM
     Indication: Delirium
     Dosage: 1 MILLIGRAM/KILOGRAM; (INFUSION)
     Route: 050
  14. METHADONE [Suspect]
     Active Substance: METHADONE HYDROCHLORIDE
     Indication: Sedation
     Dosage: 10 MILLIGRAM; (VIA NASOGASTRIC TUBE)
     Route: 050
  15. METHADONE [Suspect]
     Active Substance: METHADONE HYDROCHLORIDE
     Indication: Delirium
  16. HALOPERIDOL [Suspect]
     Active Substance: HALOPERIDOL
     Indication: Delirium
     Dosage: 30 MILLIGRAM, QD
     Route: 042
  17. HALOPERIDOL [Suspect]
     Active Substance: HALOPERIDOL
     Dosage: 20 MILLIGRAM, EVERY 6 HOURS
     Route: 042
  18. HYDROXYZINE [Suspect]
     Active Substance: HYDROXYZINE HYDROCHLORIDE
     Indication: Delirium
     Dosage: UNK, (INITIAL DOSE NOT STATED)
     Route: 065
  19. HYDROXYZINE [Suspect]
     Active Substance: HYDROXYZINE HYDROCHLORIDE
     Dosage: 50 MILLIGRAM, QD
     Route: 065
  20. THIAMINE [Concomitant]
     Active Substance: THIAMINE
     Indication: Prophylaxis
     Dosage: 200 MILLIGRAM
     Route: 042
  21. VITAMIN B [Concomitant]
     Active Substance: VITAMIN B
     Indication: Prophylaxis
     Dosage: 2 MILLILITER
     Route: 065
  22. PIPERACILLIN SODIUM\TAZOBACTAM SODIUM [Concomitant]
     Active Substance: PIPERACILLIN SODIUM\TAZOBACTAM SODIUM
     Indication: Evidence based treatment
     Dosage: 4 GRAM; EVERY 06 HOURS
     Route: 065
  23. FLUMAZENIL [Concomitant]
     Active Substance: FLUMAZENIL
     Indication: Product used for unknown indication
     Dosage: UNK
     Route: 065
  24. SODIUM OXYBATE [Concomitant]
     Active Substance: SODIUM OXYBATE
     Indication: Drug abuse
     Dosage: UNK
     Route: 065

REACTIONS (2)
  - Drug ineffective for unapproved indication [Unknown]
  - Off label use [Unknown]
